FAERS Safety Report 20363866 (Version 3)
Quarter: 2022Q1

REPORT INFORMATION
  Report Type: Spontaneous
  Country: AU (occurrence: None)
  Receive Date: 20220121
  Receipt Date: 20220310
  Transmission Date: 20220423
  Serious: Yes (Death, Hospitalization, Other)
  Sender: FDA-Public Use
  Company Number: AU-ROCHE-3005472

PATIENT
  Age: 42 Year
  Sex: Male

DRUGS (3)
  1. OCREVUS [Suspect]
     Active Substance: OCRELIZUMAB
     Indication: Multiple sclerosis
     Dosage: MOST RECENT DOSE 08/NOV/2021
     Route: 042
     Dates: start: 20200427
  2. PFIZER-BIONTECH COVID-19 VACCINE [Concomitant]
     Active Substance: TOZINAMERAN
     Dosage: 1^ST DOSE
     Dates: start: 20210821
  3. PFIZER-BIONTECH COVID-19 VACCINE [Concomitant]
     Active Substance: TOZINAMERAN
     Dosage: 2ND DOSE
     Dates: start: 20210911

REACTIONS (12)
  - COVID-19 [Fatal]
  - Multiple organ dysfunction syndrome [Fatal]
  - Cardiac arrest [Fatal]
  - General physical health deterioration [Unknown]
  - Pyrexia [Unknown]
  - Vomiting [Unknown]
  - Delirium [Unknown]
  - Haemodynamic instability [Unknown]
  - Sepsis [Unknown]
  - Cystitis [Unknown]
  - Influenza like illness [Unknown]
  - Hypotension [Unknown]
